FAERS Safety Report 21137200 (Version 3)
Quarter: 2022Q3

REPORT INFORMATION
  Report Type: Spontaneous
  Country: DE (occurrence: DE)
  Receive Date: 20220727
  Receipt Date: 20220815
  Transmission Date: 20221027
  Serious: Yes (Hospitalization, Other)
  Sender: FDA-Public Use
  Company Number: DE-LESVI-2022002526

PATIENT
  Age: 48 Year
  Sex: Male

DRUGS (6)
  1. PREGABALIN [Suspect]
     Active Substance: PREGABALIN
     Indication: Anxiety
     Dosage: 400 MG, 1X/DAY
     Route: 065
  2. PREGABALIN [Suspect]
     Active Substance: PREGABALIN
     Dosage: 800 MG, 1X/DAY
     Route: 065
  3. PREGABALIN [Suspect]
     Active Substance: PREGABALIN
     Dosage: 300 MG, 2X/DAY
     Route: 065
  4. PREGABALIN [Suspect]
     Active Substance: PREGABALIN
     Dosage: 900 MG, 1X/DAY
     Route: 065
  5. PREGABALIN [Suspect]
     Active Substance: PREGABALIN
     Dosage: 50 MG, 1X/DAY
  6. METHADONE [Concomitant]
     Active Substance: METHADONE HYDROCHLORIDE
     Indication: Drug dependence
     Dosage: 160 MG, 1X/DAY
     Route: 065

REACTIONS (7)
  - Overdose [Unknown]
  - Drug dependence [Unknown]
  - Withdrawal syndrome [Unknown]
  - Sleep paralysis [Recovered/Resolved]
  - Hypotonia [Unknown]
  - Toxicity to various agents [Unknown]
  - Off label use [Unknown]
